FAERS Safety Report 12982059 (Version 1)
Quarter: 2016Q4

REPORT INFORMATION
  Report Type: Spontaneous
  Country: KR (occurrence: KR)
  Receive Date: 20161129
  Receipt Date: 20161129
  Transmission Date: 20170207
  Serious: Yes (Hospitalization)
  Sender: FDA-Public Use
  Company Number: KR-LANNETT COMPANY, INC.-KR-2016LAN001755

PATIENT
  Age: 25 Year
  Sex: Female
  Weight: 40 kg

DRUGS (18)
  1. PYRAZINAMIDE. [Suspect]
     Active Substance: PYRAZINAMIDE
     Dosage: 1500 MG, UNK
     Dates: start: 20130605, end: 201306
  2. PYRAZINAMIDE. [Suspect]
     Active Substance: PYRAZINAMIDE
     Dosage: 1000 MG, UNK
     Dates: start: 20130624, end: 20130812
  3. ISONIAZID. [Suspect]
     Active Substance: ISONIAZID
     Dosage: 300 MG, UNK
     Dates: start: 20130831, end: 20130831
  4. RIFAMPIN. [Suspect]
     Active Substance: RIFAMPIN
     Dosage: 75 MG, UNK
     Dates: start: 20130613, end: 20130613
  5. PYRAZINAMIDE. [Suspect]
     Active Substance: PYRAZINAMIDE
     Dosage: 1000 MG, UNK
     Dates: start: 20160831, end: 20130831
  6. ISONIAZID. [Suspect]
     Active Substance: ISONIAZID
     Dosage: 300 MG, UNK
     Dates: start: 20130624, end: 20130812
  7. ISONIAZID. [Suspect]
     Active Substance: ISONIAZID
     Dosage: UNK
     Dates: start: 20130905, end: 20130905
  8. ETHAMBUTOL [Suspect]
     Active Substance: ETHAMBUTOL HYDROCHLORIDE
     Indication: PULMONARY TUBERCULOSIS
     Dosage: 800 MG, UNK
     Dates: start: 20130513, end: 20130526
  9. ETHAMBUTOL [Suspect]
     Active Substance: ETHAMBUTOL HYDROCHLORIDE
     Dosage: 400 MG, UNK
     Dates: start: 20130624, end: 20130812
  10. MOXIFLOXACIN. [Suspect]
     Active Substance: MOXIFLOXACIN
     Dosage: UNK
     Dates: start: 20130925, end: 20161001
  11. ISONIAZID. [Suspect]
     Active Substance: ISONIAZID
     Indication: PULMONARY TUBERCULOSIS
     Dosage: 300 MG, UNK
     Dates: start: 20130513
  12. ETHAMBUTOL [Suspect]
     Active Substance: ETHAMBUTOL HYDROCHLORIDE
     Dosage: 400 MG, UNK
     Dates: start: 20130831, end: 20130831
  13. RIFAMPIN. [Suspect]
     Active Substance: RIFAMPIN
     Dosage: 600 MG, UNK
     Dates: start: 20130603, end: 20130605
  14. ETHAMBUTOL [Suspect]
     Active Substance: ETHAMBUTOL HYDROCHLORIDE
     Dosage: 800 MG, UNK
     Dates: start: 20130610
  15. PYRAZINAMIDE. [Suspect]
     Active Substance: PYRAZINAMIDE
     Indication: PULMONARY TUBERCULOSIS
     Dosage: 1500 MG, UNK
     Dates: start: 20130513, end: 20130526
  16. MOXIFLOXACIN. [Suspect]
     Active Substance: MOXIFLOXACIN
     Dosage: UNK
     Dates: start: 20130903, end: 20130905
  17. RIFAMPIN. [Suspect]
     Active Substance: RIFAMPIN
     Indication: PULMONARY TUBERCULOSIS
     Dosage: 600 MG, UNK
     Dates: start: 20130513, end: 20130526
  18. MOXIFLOXACIN. [Suspect]
     Active Substance: MOXIFLOXACIN
     Indication: PULMONARY TUBERCULOSIS
     Dosage: 400 MG, UNK
     Dates: start: 20130624, end: 20130812

REACTIONS (12)
  - Aspartate aminotransferase increased [Recovered/Resolved]
  - Prothrombin time prolonged [Unknown]
  - International normalised ratio increased [Unknown]
  - Drug reaction with eosinophilia and systemic symptoms [Unknown]
  - Eosinophil count increased [Recovered/Resolved]
  - C-reactive protein increased [Unknown]
  - Alanine aminotransferase increased [Recovered/Resolved]
  - Skin burning sensation [Unknown]
  - Rash macular [Recovering/Resolving]
  - Pyrexia [Recovered/Resolved]
  - Pruritus [Unknown]
  - Pain [Unknown]

NARRATIVE: CASE EVENT DATE: 201305
